FAERS Safety Report 12628624 (Version 8)
Quarter: 2017Q4

REPORT INFORMATION
  Report Type: Spontaneous
  Country: CA (occurrence: CA)
  Receive Date: 20160808
  Receipt Date: 20171208
  Transmission Date: 20180320
  Serious: No
  Sender: FDA-Public Use
  Company Number: CA-JAZZ-2016-CA-004883

PATIENT
  Sex: Male

DRUGS (23)
  1. XYREM [Suspect]
     Active Substance: SODIUM OXYBATE
     Dosage: 3.5 G FIRST DOSE
     Route: 048
     Dates: start: 20080731, end: 2008
  2. XYREM [Suspect]
     Active Substance: SODIUM OXYBATE
     Dosage: 3.75 G, BID
     Route: 048
     Dates: start: 20110107, end: 2011
  3. XYREM [Suspect]
     Active Substance: SODIUM OXYBATE
     Dosage: 3 G SECOND DOSE
     Route: 048
     Dates: start: 20110202, end: 2011
  4. XYREM [Suspect]
     Active Substance: SODIUM OXYBATE
     Indication: CHRONIC FATIGUE SYNDROME
     Dosage: QHS AND 4.5 - 4HRS AFTER 1ST DOSE (2.25 GM,2 IN 1 D)
     Route: 048
     Dates: start: 20080715, end: 200807
  5. XYREM [Suspect]
     Active Substance: SODIUM OXYBATE
     Dosage: 4.5 G, BID
     Route: 048
     Dates: start: 20110408
  6. XYREM [Suspect]
     Active Substance: SODIUM OXYBATE
     Dosage: 5 G SECOND DOSE
     Route: 048
     Dates: start: 20081218
  7. XYREM [Suspect]
     Active Substance: SODIUM OXYBATE
     Dosage: 5.75 G FIRST DOSE
     Route: 048
     Dates: start: 20090527, end: 2009
  8. XYREM [Suspect]
     Active Substance: SODIUM OXYBATE
     Dosage: 5 G SECOND DOSE
     Route: 048
     Dates: start: 20090527, end: 2009
  9. XYREM [Suspect]
     Active Substance: SODIUM OXYBATE
     Dosage: 5 G SECOND DOSE
     Route: 048
     Dates: start: 20090625
  10. XYREM [Suspect]
     Active Substance: SODIUM OXYBATE
     Dosage: 2.25 G SECOND DOSE
     Route: 048
     Dates: start: 20110317, end: 201103
  11. XYREM [Suspect]
     Active Substance: SODIUM OXYBATE
     Dosage: 3 G, BID
     Route: 048
     Dates: start: 20080723, end: 200807
  12. XYREM [Suspect]
     Active Substance: SODIUM OXYBATE
     Dosage: 4.0 G SECOND DOSE
     Route: 048
     Dates: start: 20080731, end: 2008
  13. XYREM [Suspect]
     Active Substance: SODIUM OXYBATE
     Dosage: 4.25 G, BID
     Route: 048
     Dates: start: 20080923, end: 2008
  14. XYREM [Suspect]
     Active Substance: SODIUM OXYBATE
     Dosage: 3.75 G FIRST DOSE
     Route: 048
     Dates: start: 20110202, end: 2011
  15. XYREM [Suspect]
     Active Substance: SODIUM OXYBATE
     Dosage: 5 G, BID
     Route: 048
     Dates: start: 20090206, end: 2009
  16. XYREM [Suspect]
     Active Substance: SODIUM OXYBATE
     Dosage: 5.75 G FIRST DOSE
     Route: 048
     Dates: start: 20090310, end: 2009
  17. XYREM [Suspect]
     Active Substance: SODIUM OXYBATE
     Dosage: 5.75 G FIRST DOSE
     Route: 048
     Dates: start: 20090625
  18. XYREM [Suspect]
     Active Substance: SODIUM OXYBATE
     Dosage: 3 G FIRST DOSE
     Route: 048
     Dates: start: 20110317, end: 201103
  19. XYREM [Suspect]
     Active Substance: SODIUM OXYBATE
     Dosage: 3.75 G, BID
     Route: 048
     Dates: start: 20110331, end: 2011
  20. XYREM [Suspect]
     Active Substance: SODIUM OXYBATE
     Dosage: 4.75 G SECOND DOSE
     Route: 048
     Dates: start: 20090310, end: 2009
  21. XYREM [Suspect]
     Active Substance: SODIUM OXYBATE
     Dosage: 4.5 G, BID
     Route: 048
     Dates: start: 20081106, end: 200811
  22. XYREM [Suspect]
     Active Substance: SODIUM OXYBATE
     Dosage: 2.25 G THIRD DOSE
     Route: 048
     Dates: start: 20090625
  23. XYREM [Suspect]
     Active Substance: SODIUM OXYBATE
     Dosage: 4.5 G FIRST DOSE
     Route: 048
     Dates: start: 20081218

REACTIONS (1)
  - Treatment noncompliance [Unknown]
